FAERS Safety Report 9776334 (Version 3)
Quarter: 2014Q1

REPORT INFORMATION
  Report Type: Spontaneous
  Country: US (occurrence: US)
  Receive Date: 20131220
  Receipt Date: 20140306
  Transmission Date: 20141002
  Serious: Yes (Other)
  Sender: FDA-Public Use
  Company Number: US-TEVA-452237USA

PATIENT
  Age: 30 Year
  Sex: Female
  Weight: 66.74 kg

DRUGS (3)
  1. PARAGARD 380A [Suspect]
     Indication: CONTRACEPTION
     Route: 015
     Dates: start: 20131209, end: 20131216
  2. PARAGARD 380A [Suspect]
     Route: 015
     Dates: start: 20131216
  3. PRENATAL VITAMINS [Concomitant]
     Indication: SUPPLEMENTATION THERAPY

REACTIONS (4)
  - Mastitis [Unknown]
  - Device dislocation [Recovered/Resolved]
  - Fungal infection [Unknown]
  - Exposure during breast feeding [Unknown]
